FAERS Safety Report 19819931 (Version 1)
Quarter: 2021Q3

REPORT INFORMATION
  Report Type: Spontaneous
  Country: US (occurrence: US)
  Receive Date: 20210913
  Receipt Date: 20210913
  Transmission Date: 20211014
  Serious: No
  Sender: FDA-Public Use
  Company Number: US-SA-2021SA294704

PATIENT
  Sex: Female

DRUGS (1)
  1. DUPIXENT [Suspect]
     Active Substance: DUPILUMAB
     Indication: ASTHMA
     Dosage: 400 MG, 1X
     Route: 058

REACTIONS (5)
  - Injection site erythema [Unknown]
  - Injection site inflammation [Unknown]
  - Rash [Recovering/Resolving]
  - Injection site reaction [Unknown]
  - Injection site pruritus [Unknown]
